FAERS Safety Report 5705458-3 (Version None)
Quarter: 2008Q2

REPORT INFORMATION
  Report Type: 
  Country: None (occurrence: None)
  Receive Date: 20080415
  Receipt Date: 20080415
  Transmission Date: 20081010
  Serious: Yes (Disabling, Other)
  Sender: FDA-Public Use
  Company Number: None

PATIENT
  Age: 53 Year
  Sex: Female
  Weight: 63.5036 kg

DRUGS (4)
  1. SODIUM CHLORIDE 0.9% [Suspect]
     Indication: INFECTION
     Dosage: 10ML ON AND OFF
     Dates: start: 20080316, end: 20080402
  2. SODIUM CHLORIDE 0.9% [Suspect]
     Indication: THROMBOSIS
     Dosage: 10ML ON AND OFF
     Dates: start: 20080316, end: 20080402
  3. HEPARIN [Suspect]
     Indication: INFECTION
     Dosage: 5ML ON AND OFF
     Dates: start: 20080316, end: 20080402
  4. HEPARIN [Suspect]
     Indication: THROMBOSIS
     Dosage: 5ML ON AND OFF
     Dates: start: 20080316, end: 20080402

REACTIONS (3)
  - DISEASE RECURRENCE [None]
  - INFECTION [None]
  - INJECTION SITE THROMBOSIS [None]
